FAERS Safety Report 13713576 (Version 2)
Quarter: 2017Q4

REPORT INFORMATION
  Report Type: Spontaneous
  Country: US (occurrence: US)
  Receive Date: 20170704
  Receipt Date: 20171010
  Transmission Date: 20180320
  Serious: No
  Sender: FDA-Public Use
  Company Number: PHEH2017US019448

PATIENT
  Sex: Female

DRUGS (1)
  1. ESTRADIOL. [Suspect]
     Active Substance: ESTRADIOL
     Indication: HOT FLUSH
     Dosage: 0.05 MG, QD
     Route: 062
     Dates: start: 201609

REACTIONS (1)
  - Drug ineffective [Not Recovered/Not Resolved]

NARRATIVE: CASE EVENT DATE: 20170618
